FAERS Safety Report 7350018-4 (Version None)
Quarter: 2011Q1

REPORT INFORMATION
  Report Type: 
  Country: None (occurrence: None)
  Receive Date: 20110314
  Receipt Date: 20110307
  Transmission Date: 20110831
  Serious: Yes (Hospitalization)
  Sender: FDA-Public Use
  Company Number: IT-ROCHE-764250

PATIENT
  Sex: Male
  Weight: 62 kg

DRUGS (1)
  1. BEVACIZUMAB [Suspect]
     Dosage: FORM: VIALS
     Route: 042
     Dates: start: 20101228, end: 20110118

REACTIONS (5)
  - PYREXIA [None]
  - CARDIAC FAILURE CONGESTIVE [None]
  - DYSPNOEA [None]
  - PNEUMONIA [None]
  - ATRIAL FIBRILLATION [None]
